FAERS Safety Report 5781088-2 (Version None)
Quarter: 2008Q2

REPORT INFORMATION
  Report Type: 
  Country: None (occurrence: None)
  Receive Date: 20080618
  Receipt Date: 20080416
  Transmission Date: 20081010
  Serious: No
  Sender: FDA-Public Use
  Company Number: US-1165865

PATIENT

DRUGS (1)
  1. TRAVATAN Z [Suspect]
     Dosage: OPHTHALMIC
     Route: 047

REACTIONS (2)
  - OCULAR DISCOMFORT [None]
  - SENSATION OF FOREIGN BODY [None]
